FAERS Safety Report 8898774 (Version 1)
Quarter: 2012Q4

REPORT INFORMATION
  Report Type: 
  Country: US (occurrence: US)
  Receive Date: 20121108
  Receipt Date: 20121108
  Transmission Date: 20130627
  Serious: No
  Sender: FDA-Public Use
  Company Number: US-AMGEN-USASP2012034299

PATIENT
  Sex: Female

DRUGS (18)
  1. ENBREL [Suspect]
     Dosage: 50 mg, qwk
     Route: 058
  2. TERBINAFINE [Concomitant]
     Dosage: 250 mg, UNK
  3. TRAMADOL HCL [Concomitant]
     Dosage: 50 mg, UNK
  4. FAMOTIDINE [Concomitant]
     Dosage: 40 mg, UNK
  5. GABAPENTIN [Concomitant]
     Dosage: 300 mg, UNK
  6. LISINOPRIL [Concomitant]
     Dosage: 20 mg, UNK
  7. NADOLOL [Concomitant]
     Dosage: 40 mg, UNK
  8. SIMVASTATIN [Concomitant]
     Dosage: 40 mg, UNK
  9. METFORMIN [Concomitant]
     Dosage: 1000 mg, UNK
  10. GLIPIZIDE ER [Concomitant]
     Dosage: 5 mg, UNK
  11. ESCITALOPRAM [Concomitant]
     Dosage: 10 mg, UNK
  12. CALCIUM +D                         /00188401/ [Concomitant]
     Dosage: UNK
  13. SULFASALAZIN [Concomitant]
     Dosage: 500 mg, UNK
  14. VITAMIN D3 [Concomitant]
     Dosage: 1000 IU, UNK
  15. FLAXSEED OIL [Concomitant]
     Dosage: 1200 mg, UNK
  16. VITAMIN B12                        /00056201/ [Concomitant]
     Dosage: UNK
  17. CO Q 10 [Concomitant]
     Dosage: 100 mg, UNK
  18. MULTIVITAMIN                       /00097801/ [Concomitant]
     Dosage: UNK

REACTIONS (6)
  - Joint swelling [Unknown]
  - Pain [Unknown]
  - Aphthous stomatitis [Unknown]
  - Skin ulcer [Unknown]
  - Impaired healing [Unknown]
  - Fungal infection [Unknown]
